FAERS Safety Report 4899651-X (Version None)
Quarter: 2006Q1

REPORT INFORMATION
  Report Type: 
  Country: None (occurrence: None)
  Receive Date: 20060131
  Receipt Date: 20060124
  Transmission Date: 20060701
  Serious: No
  Sender: FDA-Public Use
  Company Number: MED000097

PATIENT
  Age: 29 Year
  Sex: Female

DRUGS (1)
  1. LACTATED RINGER'S IN PLASTIC CONTAINER [Suspect]
     Dates: start: 20050418, end: 20050418

REACTIONS (4)
  - BURNING SENSATION [None]
  - INJECTION SITE REACTION [None]
  - PAIN [None]
  - PRURITUS [None]
